FAERS Safety Report 6424867-0 (Version None)
Quarter: 2009Q4

REPORT INFORMATION
  Report Type: 
  Country: None (occurrence: None)
  Receive Date: 20091103
  Receipt Date: 20091023
  Transmission Date: 20100525
  Serious: Yes (Other)
  Sender: FDA-Public Use
  Company Number: FR-PFIZER INC-2009249074

PATIENT
  Age: 80 Year
  Sex: Male

DRUGS (1)
  1. SOLU-MEDROL [Suspect]
     Indication: HYPERSENSITIVITY
     Dosage: 120 MG, SINGLE
     Route: 042
     Dates: start: 20090701, end: 20090701

REACTIONS (4)
  - ANAPHYLACTIC SHOCK [None]
  - BLOOD PRESSURE DECREASED [None]
  - FATIGUE [None]
  - HYPERHIDROSIS [None]
